FAERS Safety Report 7137641-7 (Version None)
Quarter: 2010Q4

REPORT INFORMATION
  Report Type: 
  Country: None (occurrence: None)
  Receive Date: 20101103
  Receipt Date: 20100610
  Transmission Date: 20110411
  Serious: Yes (Other)
  Sender: FDA-Public Use
  Company Number: 2010S1000509

PATIENT
  Age: 61 Year
  Sex: Female
  Weight: 75 kg

DRUGS (4)
  1. CUBICIN [Suspect]
     Indication: SKIN INFECTION
     Dosage: 6.7 MG/KG;Q48H;IV
     Route: 042
     Dates: start: 20100420, end: 20100511
  2. CUBICIN [Suspect]
     Indication: SOFT TISSUE INFECTION
     Dosage: 6.7 MG/KG;Q48H;IV
     Route: 042
     Dates: start: 20100420, end: 20100511
  3. MEROPENEM [Concomitant]
  4. FUNGUSTATIN [Concomitant]

REACTIONS (1)
  - BLOOD CREATINE PHOSPHOKINASE INCREASED [None]
